FAERS Safety Report 16880614 (Version 1)
Quarter: 2019Q4

REPORT INFORMATION
  Report Type: Spontaneous
  Country: US (occurrence: US)
  Receive Date: 20191002
  Receipt Date: 20191002
  Transmission Date: 20200122
  Serious: No
  Sender: FDA-Public Use
  Company Number: None

PATIENT
  Age: 72 Year
  Sex: Male
  Weight: 99 kg

DRUGS (10)
  1. OMEGA-3 ACIDS [Concomitant]
     Active Substance: OMEGA-3 FATTY ACIDS
  2. SIMVASTATIN. [Concomitant]
     Active Substance: SIMVASTATIN
  3. VITAMIN D3 [Concomitant]
     Active Substance: CHOLECALCIFEROL
  4. ALPHA LIPOIC [Concomitant]
  5. SELENIUM [Concomitant]
     Active Substance: SELENIUM
  6. QUNOL LIQUID COQ10 SUPERIOR ABSORPTION [Concomitant]
     Active Substance: DIETARY SUPPLEMENT
  7. RESTASIS [Suspect]
     Active Substance: CYCLOSPORINE
     Indication: DRY EYE
     Dosage: ?          QUANTITY:1 DROP(S);?
     Route: 047
     Dates: start: 20190927, end: 20191001
  8. DOXAZOSIN [Concomitant]
     Active Substance: DOXAZOSIN MESYLATE
  9. BILBERRY [Concomitant]
     Active Substance: BILBERRY
  10. LOSARTAN. [Concomitant]
     Active Substance: LOSARTAN

REACTIONS (5)
  - Instillation site erythema [None]
  - Eye discharge [None]
  - Periorbital swelling [None]
  - Erythema [None]
  - Instillation site foreign body sensation [None]

NARRATIVE: CASE EVENT DATE: 20191001
